FAERS Safety Report 6693382-1 (Version None)
Quarter: 2010Q2

REPORT INFORMATION
  Report Type: 
  Country: None (occurrence: None)
  Receive Date: 20100420
  Receipt Date: 20100414
  Transmission Date: 20101027
  Serious: Yes (Death)
  Sender: FDA-Public Use
  Company Number: 2010US001259

PATIENT
  Age: 56 Year
  Sex: Male

DRUGS (1)
  1. MYCAMINE [Suspect]
     Indication: CIRRHOSIS ALCOHOLIC
     Dosage: 50 MG
     Dates: start: 20100118

REACTIONS (1)
  - DEATH [None]
